FAERS Safety Report 6948911-7 (Version None)
Quarter: 2010Q3

REPORT INFORMATION
  Report Type: 
  Country: None (occurrence: None)
  Receive Date: 20100828
  Receipt Date: 20100113
  Transmission Date: 20110219
  Serious: No
  Sender: FDA-Public Use
  Company Number: US-ABBOTT-09P-163-0610260-00

PATIENT
  Sex: Male
  Weight: 83.99 kg

DRUGS (4)
  1. NIASPAN [Suspect]
     Indication: LOW DENSITY LIPOPROTEIN INCREASED
     Route: 048
     Dates: start: 20090501, end: 20091109
  2. FISH OIL [Concomitant]
     Indication: PRODUCT USED FOR UNKNOWN INDICATION
  3. MULTI-VITAMIN [Concomitant]
     Indication: PRODUCT USED FOR UNKNOWN INDICATION
  4. ASPIRIN [Concomitant]
     Indication: PRODUCT USED FOR UNKNOWN INDICATION
     Route: 048

REACTIONS (4)
  - BLOOD CHOLESTEROL INCREASED [None]
  - COUGH [None]
  - GASTROOESOPHAGEAL REFLUX DISEASE [None]
  - LOW DENSITY LIPOPROTEIN INCREASED [None]
